FAERS Safety Report 4662512-5 (Version None)
Quarter: 2005Q2

REPORT INFORMATION
  Report Type: 
  Country: None (occurrence: None)
  Receive Date: 20050512
  Receipt Date: 20050427
  Transmission Date: 20051028
  Serious: No
  Sender: FDA-Public Use
  Company Number: 2005-0008207

PATIENT
  Age: 44 Year
  Sex: Male

DRUGS (1)
  1. HEPSERA [Suspect]
     Indication: HEPATITIS B
     Dosage: 10 MG, 1 IN 1 D, ORAL
     Route: 048
     Dates: start: 20050113

REACTIONS (3)
  - ATRIAL FIBRILLATION [None]
  - MITRAL VALVE PROLAPSE [None]
  - PALPITATIONS [None]
